FAERS Safety Report 10081456 (Version 1)
Quarter: 2014Q2

REPORT INFORMATION
  Report Type: Spontaneous
  Country: FR (occurrence: FR)
  Receive Date: 20140416
  Receipt Date: 20140416
  Transmission Date: 20141212
  Serious: Yes (Death)
  Sender: FDA-Public Use
  Company Number: FR-PFIZER INC-2014101472

PATIENT
  Age: 34 Year
  Sex: Male

DRUGS (4)
  1. LYRICA [Suspect]
     Dosage: UNK
  2. TRAMADOL HCL [Suspect]
     Dosage: UNK
  3. OXYCODONE [Suspect]
     Dosage: UNK
  4. DULOXETINE [Suspect]
     Dosage: UNK

REACTIONS (1)
  - Overdose [Fatal]
